FAERS Safety Report 5782415-2 (Version None)
Quarter: 2008Q2

REPORT INFORMATION
  Report Type: 
  Country: None (occurrence: None)
  Receive Date: 20080623
  Receipt Date: 20080610
  Transmission Date: 20081010
  Serious: Yes (Other)
  Sender: FDA-Public Use
  Company Number: PHHY2008GB10628

PATIENT

DRUGS (5)
  1. DICLOFENAC SODIUM [Suspect]
     Indication: ARTHRITIS
  2. CLOPIDOGREL [Concomitant]
     Indication: PLATELET AGGREGATION INHIBITION
     Dosage: 75 MG, QD
  3. TRAMADOL HCL [Concomitant]
  4. IBUROFEN [Concomitant]
  5. IMODIUM [Concomitant]

REACTIONS (9)
  - ARTHRITIS [None]
  - BALANCE DISORDER [None]
  - DIARRHOEA [None]
  - DIPLOPIA [None]
  - DYSARTHRIA [None]
  - PAIN [None]
  - PROSTATIC DISORDER [None]
  - SURGERY [None]
  - TRANSIENT ISCHAEMIC ATTACK [None]
